FAERS Safety Report 7057441-6 (Version None)
Quarter: 2010Q4

REPORT INFORMATION
  Report Type: 
  Country: None (occurrence: None)
  Receive Date: 20101022
  Receipt Date: 20101013
  Transmission Date: 20110411
  Serious: Yes (Other)
  Sender: FDA-Public Use
  Company Number: US-JNJFOC-20101004084

PATIENT
  Sex: Male
  Weight: 117.94 kg

DRUGS (6)
  1. REMICADE [Suspect]
     Indication: SCLERITIS
     Route: 042
  2. REMICADE [Suspect]
     Route: 042
  3. METHOTREXATE [Concomitant]
     Indication: SCLERITIS
     Route: 048
  4. PREDNISONE [Concomitant]
     Indication: SCLERITIS
     Route: 048
  5. ANTIHYPERTENSIVE [Concomitant]
     Indication: HYPERTENSION
     Route: 048
  6. REQUIP [Concomitant]
     Indication: RESTLESS LEGS SYNDROME
     Route: 048

REACTIONS (3)
  - FALL [None]
  - INFECTION [None]
  - SKIN LACERATION [None]
